FAERS Safety Report 9768646 (Version 1)
Quarter: 2013Q4

REPORT INFORMATION
  Report Type: Spontaneous
  Country: US (occurrence: US)
  Receive Date: 20131218
  Receipt Date: 20131218
  Transmission Date: 20140711
  Serious: No
  Sender: FDA-Public Use
  Company Number: US-009507513-1312USA003458

PATIENT
  Age: 41 Year
  Sex: Female

DRUGS (3)
  1. JANUMET [Suspect]
     Indication: DIABETES MELLITUS
     Dosage: 50 MG/1000MG, BID
     Route: 048
     Dates: end: 201310
  2. JANUMET [Suspect]
     Dosage: 50 MG/100MG, BID
     Route: 048
     Dates: start: 201311, end: 2013
  3. PRINIVIL [Concomitant]

REACTIONS (3)
  - Nausea [Not Recovered/Not Resolved]
  - Headache [Not Recovered/Not Resolved]
  - Nausea [Unknown]
